FAERS Safety Report 7433704-7 (Version None)
Quarter: 2011Q2

REPORT INFORMATION
  Report Type: 
  Country: None (occurrence: None)
  Receive Date: 20110422
  Receipt Date: 20110419
  Transmission Date: 20111010
  Serious: Yes (Other)
  Sender: FDA-Public Use
  Company Number: US-ABBOTT-11P-163-0720382-00

PATIENT
  Age: 43 Year
  Sex: Female

DRUGS (2)
  1. ADALIMUMAB [Suspect]
     Indication: PSORIASIS
     Route: 058
  2. ADALIMUMAB [Suspect]
     Indication: PSORIATIC ARTHROPATHY

REACTIONS (1)
  - THYROID CANCER [None]
